FAERS Safety Report 9708618 (Version 5)
Quarter: 2020Q3

REPORT INFORMATION
  Report Type: Report from Study
  Country: FR (occurrence: FR)
  Receive Date: 20131125
  Receipt Date: 20140410
  Transmission Date: 20201104
  Serious: Yes (Other)
  Sender: FDA-Public Use
  Company Number: FR-JNJFOC-20120102707

PATIENT
  Age: 61 Year
  Sex: Male
  Weight: 58 kg

DRUGS (12)
  1. ETHAMBUTOL [Concomitant]
     Active Substance: ETHAMBUTOL HYDROCHLORIDE
     Indication: TUBERCULOSIS
     Route: 048
     Dates: start: 20110325
  2. TMC207 [Suspect]
     Active Substance: BEDAQUILINE
     Indication: TUBERCULOSIS
     Route: 048
     Dates: start: 20111116, end: 20111215
  3. CAPREOMYCIN [Concomitant]
     Active Substance: CAPREOMYCIN
     Indication: TUBERCULOSIS
     Route: 042
     Dates: start: 20111116
  4. ETHIONAMIDE [Concomitant]
     Active Substance: ETHIONAMIDE
     Indication: TUBERCULOSIS
     Route: 048
     Dates: start: 20110913
  5. TIENAM [Concomitant]
     Active Substance: CILASTATIN SODIUM\IMIPENEM
     Indication: TUBERCULOSIS
     Route: 042
     Dates: start: 20111116
  6. AUGMENTIN [Concomitant]
     Active Substance: AMOXICILLIN\CLAVULANATE POTASSIUM
     Indication: TUBERCULOSIS
     Route: 048
     Dates: start: 20111116
  7. TMC207 [Suspect]
     Active Substance: BEDAQUILINE
     Route: 048
  8. CORDARONE [Suspect]
     Active Substance: AMIODARONE HYDROCHLORIDE
     Indication: VENTRICULAR EXTRASYSTOLES
     Route: 048
     Dates: start: 201103, end: 20120105
  9. LAMPRENE [Concomitant]
     Active Substance: CLOFAZIMINE
     Indication: TUBERCULOSIS
     Route: 048
     Dates: start: 20111116
  10. TARDYFERON [Concomitant]
     Active Substance: FERROUS SULFATE
     Indication: IRON DEFICIENCY
     Route: 048
     Dates: start: 201111
  11. LOVENOX [Concomitant]
     Active Substance: ENOXAPARIN SODIUM
     Indication: PRODUCT USED FOR UNKNOWN INDICATION
     Route: 058
  12. LINEZOLID. [Concomitant]
     Active Substance: LINEZOLID
     Indication: TUBERCULOSIS
     Route: 048
     Dates: start: 20110706

REACTIONS (2)
  - Electrocardiogram QT prolonged [Unknown]
  - Hypoacusis [Unknown]

NARRATIVE: CASE EVENT DATE: 20111215
